FAERS Safety Report 9115207 (Version 1)
Quarter: 2013Q1

REPORT INFORMATION
  Report Type: Spontaneous
  Country: US (occurrence: None)
  Receive Date: 20130128
  Receipt Date: 20130128
  Transmission Date: 20140127
  Serious: Yes (Death)
  Sender: FDA-Public Use
  Company Number: FK201300159

PATIENT
  Age: 63 Year
  Sex: Male
  Weight: 97.07 kg

DRUGS (12)
  1. HEPARIN SODIUM [Suspect]
     Indication: CORONARY ARTERY BYPASS
     Dosage: 35000 USP UNITS INTRAVENOUS (NOT OTHERWISE SPECIFIED)
     Route: 042
     Dates: start: 20121208
  2. ASA (ACETYLSALICYLIC ACID) [Concomitant]
  3. LOPRESSOR (METOPROLOL TARTRATE) [Concomitant]
  4. LIPITOR (ATORVASTATIN CALCIUM) [Concomitant]
  5. ALBUTEROL [Concomitant]
  6. FORADIL [Concomitant]
  7. SPIRIVA (TIOTROPIUM BROMIDE) [Concomitant]
  8. EFFEXOR [Concomitant]
  9. GLUCOTROL (GLIPIZIDE) [Concomitant]
  10. APIDRA (INSULIN GLULISINE) [Concomitant]
  11. NITROGLYCERN (GLYCRYL TRINITRATE) [Concomitant]
  12. VASOTEC [Concomitant]

REACTIONS (5)
  - Lactic acidosis [None]
  - Hypotension [None]
  - Haemorrhage [None]
  - Rash [None]
  - Cardiac tamponade [None]
